FAERS Safety Report 24194230 (Version 1)
Quarter: 2024Q3

REPORT INFORMATION
  Report Type: Spontaneous
  Country: FR (occurrence: FR)
  Receive Date: 20240809
  Receipt Date: 20240809
  Transmission Date: 20241017
  Serious: Yes (Disabling)
  Sender: INSUD PHARMA
  Company Number: None

PATIENT
  Age: 22 Year
  Sex: Female
  Weight: 68 kg

DRUGS (1)
  1. DROSPIRENONE [Suspect]
     Active Substance: DROSPIRENONE
     Indication: Dysmenorrhoea
     Route: 048
     Dates: start: 20240409

REACTIONS (2)
  - Menstruation irregular [Not Recovered/Not Resolved]
  - Galactorrhoea [Not Recovered/Not Resolved]
